FAERS Safety Report 8778651 (Version 4)
Quarter: 2012Q4

REPORT INFORMATION
  Report Type: 
  Country: DK (occurrence: IT)
  Receive Date: 20120912
  Receipt Date: 20120926
  Transmission Date: 20130627
  Serious: Yes (Hospitalization)
  Sender: FDA-Public Use
  Company Number: IT-FRI-1000038505

PATIENT
  Age: 37 Year
  Sex: Female

DRUGS (1)
  1. ESCITALOPRAM [Suspect]
     Indication: FIBROMYALGIA
     Dosage: 20 mg
     Route: 048

REACTIONS (2)
  - Convulsion [Recovering/Resolving]
  - Off label use [Unknown]
